FAERS Safety Report 13575870 (Version 1)
Quarter: 2017Q2

REPORT INFORMATION
  Report Type: Spontaneous
  Country: US (occurrence: US)
  Receive Date: 20170523
  Receipt Date: 20170523
  Transmission Date: 20170830
  Serious: Yes (Other)
  Sender: FDA-Public Use
  Company Number: None

PATIENT
  Age: 19 Year
  Sex: Female
  Weight: 110.2 kg

DRUGS (3)
  1. PAROXETINE HCL [Concomitant]
     Active Substance: PAROXETINE HYDROCHLORIDE
  2. INVEGA [Suspect]
     Active Substance: PALIPERIDONE
     Indication: AUTISM SPECTRUM DISORDER
     Dosage: ?          QUANTITY:30 TABLET(S);?
     Route: 048
     Dates: start: 20090501, end: 20170518
  3. INVEGA [Suspect]
     Active Substance: PALIPERIDONE
     Indication: IMPULSIVE BEHAVIOUR
     Dosage: ?          QUANTITY:30 TABLET(S);?
     Route: 048
     Dates: start: 20090501, end: 20170518

REACTIONS (3)
  - Swelling [None]
  - Weight increased [None]
  - Fluid retention [None]

NARRATIVE: CASE EVENT DATE: 20140501
